FAERS Safety Report 25533068 (Version 1)
Quarter: 2025Q3

REPORT INFORMATION
  Report Type: Spontaneous
  Country: JP (occurrence: JP)
  Receive Date: 20250709
  Receipt Date: 20250709
  Transmission Date: 20251020
  Serious: Yes (Other)
  Sender: RANBAXY
  Company Number: JP-SUN PHARMACEUTICAL INDUSTRIES LTD-2025RR-515686

PATIENT
  Age: 6 Year
  Sex: Male

DRUGS (4)
  1. PREDNISOLONE [Suspect]
     Active Substance: PREDNISOLONE
     Indication: Neuropathy peripheral
     Dosage: 1 MILLIGRAM/KILOGRAM, DAILY
     Route: 048
  2. METHYLPREDNISOLONE [Suspect]
     Active Substance: METHYLPREDNISOLONE
     Indication: Neuropathy peripheral
     Dosage: 500 MILLIGRAM, DAILY
     Route: 042
  3. VALPROIC ACID [Suspect]
     Active Substance: VALPROIC ACID
     Indication: Neuropathy peripheral
     Dosage: 200 MILLIGRAM, DAILY
     Route: 048
  4. VALPROIC ACID [Suspect]
     Active Substance: VALPROIC ACID
     Route: 048

REACTIONS (6)
  - Cushingoid [Unknown]
  - Weight increased [Unknown]
  - Disease recurrence [Recovered/Resolved]
  - Nasopharyngitis [Recovering/Resolving]
  - COVID-19 [Recovering/Resolving]
  - Gastroenteritis [Recovering/Resolving]
